FAERS Safety Report 9357952 (Version 1)
Quarter: 2013Q2

REPORT INFORMATION
  Report Type: Spontaneous
  Country: US (occurrence: None)
  Receive Date: 20130619
  Receipt Date: 20130619
  Transmission Date: 20140414
  Serious: Yes (Hospitalization, Other)
  Sender: FDA-Public Use
  Company Number: None

PATIENT
  Age: 4 Month
  Sex: Female
  Weight: 7 kg

DRUGS (4)
  1. CLONAZEPAM [Suspect]
     Indication: IRRITABILITY
     Dosage: 0.12 ML Q 8 HOURS NGT
     Route: 048
     Dates: start: 20130313, end: 20130414
  2. ZONISAMIDE [Concomitant]
  3. PREDNISONE [Concomitant]
  4. RANITIDINE [Concomitant]

REACTIONS (9)
  - Drug dispensing error [None]
  - Incorrect dose administered [None]
  - Somnolence [None]
  - Drug withdrawal convulsions [None]
  - Brain injury [None]
  - Drooling [None]
  - Condition aggravated [None]
  - Irritability [None]
  - Hypophagia [None]
